FAERS Safety Report 17624269 (Version 1)
Quarter: 2020Q2

REPORT INFORMATION
  Report Type: Spontaneous
  Country: FR (occurrence: FR)
  Receive Date: 20200403
  Receipt Date: 20200403
  Transmission Date: 20200713
  Serious: Yes (Death, Hospitalization, Other)
  Sender: FDA-Public Use
  Company Number: FR-PFIZER INC-2020136571

PATIENT
  Age: 64 Year
  Sex: Female

DRUGS (11)
  1. INSULIN [Concomitant]
     Active Substance: INSULIN NOS
     Route: 065
     Dates: start: 20191122
  2. FILGRASTIM [Concomitant]
     Active Substance: FILGRASTIM
     Dosage: 1 MG, 1X/DAY
     Route: 042
     Dates: start: 20191122
  3. PRIMPERAN [Concomitant]
     Active Substance: METOCLOPRAMIDE HYDROCHLORIDE
     Dosage: 40 MG, 1X/DAY (10 MG/2 ML)
     Route: 042
     Dates: start: 20191122
  4. ALVITYL [ASCORBIC ACID;BIOTIN;COLECALCIFEROL;CYANOCOBALAMIN;DEXPANTHEN [Concomitant]
     Dosage: 1 DF, 1X/DAY
     Route: 048
     Dates: start: 20191122
  5. PREGABALIN. [Concomitant]
     Active Substance: PREGABALIN
     Dosage: 150 MG, 1X/DAY
     Route: 048
     Dates: start: 20191122
  6. METHOTREXATE SODIUM. [Suspect]
     Active Substance: METHOTREXATE SODIUM
     Indication: BURKITT^S LYMPHOMA
     Dosage: UNK
     Route: 065
     Dates: start: 20191003
  7. BACTRIM [Concomitant]
     Active Substance: SULFAMETHOXAZOLE\TRIMETHOPRIM
     Dosage: 1 DF, 1X/DAY
     Route: 042
     Dates: start: 20191122
  8. MORPHIN [Concomitant]
     Active Substance: MORPHINE
     Dosage: 2 MG, 1X/DAY(IF NEEDED)
     Route: 042
     Dates: start: 20191122
  9. ZOPHREN [ONDANSETRON HYDROCHLORIDE] [Concomitant]
     Active Substance: ONDANSETRON
     Indication: PROPHYLAXIS OF NAUSEA AND VOMITING
     Dosage: 12 MG, 1X/DAY( IN CASE OF NAUSEA AND VOMITING; 4 MG/2 ML)
     Route: 042
     Dates: start: 20191122
  10. PANTOPRAZOL [PANTOPRAZOLE] [Concomitant]
     Active Substance: PANTOPRAZOLE
     Dosage: 40 MG, 1X/DAY
     Route: 042
     Dates: start: 20191122
  11. ACICLOVIR [Concomitant]
     Active Substance: ACYCLOVIR
     Dosage: 750 MG, 1X/DAY
     Route: 042
     Dates: start: 20191122

REACTIONS (3)
  - Burkitt^s lymphoma [Fatal]
  - Lung disorder [Fatal]
  - Condition aggravated [Fatal]

NARRATIVE: CASE EVENT DATE: 20191004
